FAERS Safety Report 9904994 (Version 1)
Quarter: 2014Q1

REPORT INFORMATION
  Report Type: Spontaneous
  Country: US (occurrence: US)
  Receive Date: 20140218
  Receipt Date: 20140218
  Transmission Date: 20141002
  Serious: No
  Sender: FDA-Public Use
  Company Number: US-GILEAD-2012-0050732

PATIENT
  Sex: Male

DRUGS (1)
  1. LETAIRIS [Suspect]
     Indication: PRODUCT USED FOR UNKNOWN INDICATION
     Dosage: 10 MG, UNK
     Route: 048
     Dates: start: 20111208, end: 20120131

REACTIONS (5)
  - Insomnia [Unknown]
  - Anxiety [Unknown]
  - Unevaluable event [Unknown]
  - Constipation [Unknown]
  - Nasal congestion [Unknown]
